FAERS Safety Report 7609078-5 (Version None)
Quarter: 2011Q3

REPORT INFORMATION
  Report Type: 
  Country: None (occurrence: None)
  Receive Date: 20110714
  Receipt Date: 20110711
  Transmission Date: 20111222
  Serious: Yes (Hospitalization, Other)
  Sender: FDA-Public Use
  Company Number: JP-PFIZER INC-2011148164

PATIENT
  Age: 41 Year
  Sex: Male

DRUGS (5)
  1. TRAMADOL HYDROCHLORIDE [Concomitant]
     Dosage: 8 CAPSULES DAILY
     Route: 048
  2. DIAZEPAM [Concomitant]
     Dosage: 1 TABLET DAILY
     Route: 048
  3. LYRICA [Suspect]
     Indication: SPINAL COLUMN STENOSIS
     Dosage: 450 MG/DAY
     Route: 048
  4. LYRICA [Suspect]
     Dosage: UNK
     Route: 048
  5. NORTRIPTYLINE HCL [Concomitant]
     Dosage: 2 TABLETS DAILY
     Route: 048

REACTIONS (10)
  - ECZEMA [None]
  - HEPATIC FUNCTION ABNORMAL [None]
  - OEDEMA PERIPHERAL [None]
  - MALAISE [None]
  - RHABDOMYOLYSIS [None]
  - RENAL IMPAIRMENT [None]
  - RASH [None]
  - ASTHENIA [None]
  - BLOOD CREATINE PHOSPHOKINASE INCREASED [None]
  - PYREXIA [None]
